FAERS Safety Report 19273813 (Version 1)
Quarter: 2021Q2

REPORT INFORMATION
  Report Type: Spontaneous
  Country: US (occurrence: US)
  Receive Date: 20210518
  Receipt Date: 20210518
  Transmission Date: 20210717
  Serious: Yes (Other)
  Sender: FDA-Public Use
  Company Number: None

PATIENT
  Age: 8 Year
  Sex: Female
  Weight: 32 kg

DRUGS (7)
  1. ETOPOSIDE. [Suspect]
     Active Substance: ETOPOSIDE
     Indication: EWING^S SARCOMA
     Route: 042
     Dates: start: 20210203, end: 20210207
  2. MESNA 1080 MG/M2 IV DAILY DAYS 1?5, REPEAT EVERY 4 WEEKS [Concomitant]
     Dates: start: 20210106
  3. DEXAMETHASONE 5 MG IV DAILY ON DAYS 1?5, , REPEAT EVERY 2 WEEKS [Concomitant]
     Dates: start: 20210106
  4. IFOSFAMIDE 1800 MG/M2 IV DAILY DAYS 1?5, REPEAT EVERY 4 WEEKS [Concomitant]
     Dates: start: 20210106
  5. NEULASTA 3 MG SUBQ ON DAY 6, REPEAT EVERY 2 WEEKS [Concomitant]
     Dates: start: 20210106
  6. EMEND 120 MG IV X1 DAY 1 , REPEAT EVERY 2 WEEKS [Concomitant]
     Dates: start: 20210106
  7. ZOFRAN 0.15 MG/KG IV Q6H , REPEAT EVERY 2 WEEKS [Concomitant]
     Dates: start: 20210106

REACTIONS (5)
  - Headache [None]
  - Flushing [None]
  - Infusion related reaction [None]
  - Dyspnoea [None]
  - Cough [None]

NARRATIVE: CASE EVENT DATE: 20210203
